FAERS Safety Report 8552343-8 (Version None)
Quarter: 2012Q3

REPORT INFORMATION
  Report Type: 
  Country: None (occurrence: None)
  Receive Date: 20120731
  Receipt Date: 20120727
  Transmission Date: 20120928
  Serious: No
  Sender: FDA-Public Use
  Company Number: US-BAYER-2012-075646

PATIENT
  Age: 57 Year
  Sex: Male

DRUGS (6)
  1. VITAMIN D [Concomitant]
  2. METFORMIN HYDROCHLORIDE [Concomitant]
  3. COZAAR [Concomitant]
  4. BETASERON [Suspect]
     Indication: MULTIPLE SCLEROSIS
     Dosage: .25 MG, UNK
     Route: 058
     Dates: start: 20100901
  5. BACLOFEN [Concomitant]
  6. NEXIUM [Concomitant]

REACTIONS (1)
  - PLATELET COUNT DECREASED [None]
